FAERS Safety Report 10055756 (Version 1)
Quarter: 2014Q2

REPORT INFORMATION
  Report Type: Spontaneous
  Country: PH (occurrence: PH)
  Receive Date: 20140403
  Receipt Date: 20140403
  Transmission Date: 20141212
  Serious: Yes (Death, Other)
  Sender: FDA-Public Use
  Company Number: PH-009507513-1404PHL000223

PATIENT
  Age: 87 Year
  Sex: Female

DRUGS (4)
  1. COZAAR [Suspect]
     Indication: HYPERTENSION
     Dosage: 1 DF, QD
     Route: 048
  2. PLENDIL [Concomitant]
     Indication: HYPERTENSION
     Dosage: UNK
  3. CATAPRES [Concomitant]
     Indication: HYPERTENSION
     Dosage: UNK
  4. CELEBREX [Concomitant]
     Indication: BLOOD URIC ACID
     Dosage: UNK

REACTIONS (1)
  - Myocardial infarction [Fatal]
